FAERS Safety Report 4555142-7 (Version None)
Quarter: 2005Q1

REPORT INFORMATION
  Report Type: 
  Country: None (occurrence: None)
  Receive Date: 20050118
  Receipt Date: 20050112
  Transmission Date: 20050727
  Serious: Yes (Hospitalization)
  Sender: FDA-Public Use
  Company Number: US-MERCK-0501USA01941

PATIENT
  Age: 35 Year
  Sex: Female

DRUGS (4)
  1. HYDRODIURIL [Suspect]
     Route: 065
  2. BENZTROPINE MESYLATE [Suspect]
     Route: 065
  3. OLANZAPINE [Suspect]
     Route: 065
  4. VALPROIC ACID [Suspect]
     Route: 065

REACTIONS (19)
  - ACUTE PRERENAL FAILURE [None]
  - BETA HAEMOLYTIC STREPTOCOCCAL INFECTION [None]
  - BIPOLAR DISORDER [None]
  - BLOOD AMYLASE INCREASED [None]
  - COMA [None]
  - DEPRESSED MOOD [None]
  - DIABETES MELLITUS NON-INSULIN-DEPENDENT [None]
  - ENCEPHALOPATHY [None]
  - HEADACHE [None]
  - HEART RATE INCREASED [None]
  - HYPERGLYCAEMIC HYPEROSMOLAR NONKETOTIC SYNDROME [None]
  - HYPERHIDROSIS [None]
  - LIPASE INCREASED [None]
  - MIOSIS [None]
  - PANCREATITIS [None]
  - SEPSIS [None]
  - SPUTUM CULTURE POSITIVE [None]
  - THERAPY NON-RESPONDER [None]
  - VOMITING [None]
